FAERS Safety Report 8777611 (Version 1)
Quarter: 2012Q4

REPORT INFORMATION
  Report Type: 
  Country: IT (occurrence: IT)
  Receive Date: 20120910
  Receipt Date: 20120910
  Transmission Date: 20130627
  Serious: Yes (Hospitalization)
  Sender: FDA-Public Use
  Company Number: IT-SANOFI-AVENTIS-2012SA061646

PATIENT
  Age: 83 Year
  Sex: Female

DRUGS (8)
  1. ENOXAPARIN SODIUM [Suspect]
     Indication: DEEP VEIN THROMBOSIS LEG
     Route: 058
     Dates: start: 20120716, end: 20120724
  2. SINTROM [Suspect]
     Indication: DEEP VEIN THROMBOSIS
     Route: 065
     Dates: start: 20020101
  3. VALSARTAN [Concomitant]
     Indication: HYPERTENSION ARTERIAL
     Route: 048
     Dates: start: 20110101, end: 20120724
  4. OMEPRAZOLE [Concomitant]
  5. FOLINA [Concomitant]
  6. BENEXOL [Concomitant]
  7. DELTACORTENE [Concomitant]
     Indication: THROMBOCYTOPENIA
     Route: 048
     Dates: start: 20120717, end: 20120724
  8. SOLDESAM [Concomitant]
     Indication: THROMBOCYTOPENIA
     Route: 042
     Dates: start: 20120626, end: 20120714

REACTIONS (2)
  - Oedema peripheral [Recovering/Resolving]
  - Haematoma [Recovering/Resolving]
